FAERS Safety Report 5308016-8 (Version None)
Quarter: 2007Q1

REPORT INFORMATION
  Report Type: 
  Country: None (occurrence: None)
  Receive Date: 20070130
  Receipt Date: 20060327
  Transmission Date: 20070707
  Serious: No
  Sender: FDA-Public Use
  Company Number: 06P-163-0328894-00

PATIENT
  Sex: Female

DRUGS (2)
  1. NIMBEX [Suspect]
     Indication: ANAESTHESIA
     Dosage: INTRAVENOUS
     Route: 042
     Dates: start: 20060320, end: 20060320
  2. NIMBEX [Suspect]
     Indication: ANAESTHESIA
     Dosage: INTRAVENOUS
     Route: 042
     Dates: start: 20060325, end: 20060325

REACTIONS (1)
  - NEUROMUSCULAR BLOCK PROLONGED [None]
